FAERS Safety Report 13130797 (Version 1)
Quarter: 2017Q1

REPORT INFORMATION
  Report Type: Spontaneous
  Country: FR (occurrence: FR)
  Receive Date: 20170119
  Receipt Date: 20170119
  Transmission Date: 20170428
  Serious: Yes (Hospitalization)
  Sender: FDA-Public Use
  Company Number: FR-JNJFOC-20170111591

PATIENT
  Age: 41 Year
  Sex: Female

DRUGS (14)
  1. INTELENCE [Suspect]
     Active Substance: ETRAVIRINE
     Indication: HIV INFECTION
     Dosage: 2 TABLETS IN THE EVENING
     Route: 048
     Dates: start: 20161219, end: 20161224
  2. BACLOFEN. [Concomitant]
     Active Substance: BACLOFEN
     Indication: ALCOHOLISM
     Dosage: 3-3-3-3
     Route: 065
  3. TERCIAN [Suspect]
     Active Substance: CYAMEMAZINE
     Indication: AGITATION
     Dosage: 1 TABLET
     Route: 048
     Dates: start: 20161216, end: 20161224
  4. VALIUM [Concomitant]
     Active Substance: DIAZEPAM
     Indication: DRUG DEPENDENCE
     Dosage: 10 MG 3/4 TABLET/DAY
     Route: 065
  5. KETOPROFEN. [Suspect]
     Active Substance: KETOPROFEN
     Indication: SCIATICA
     Dosage: 1 TABLET IN THE MORNING AND EVENING
     Route: 048
     Dates: start: 20161216, end: 20161226
  6. KETOPROFEN. [Suspect]
     Active Substance: KETOPROFEN
     Indication: SCIATICA
     Dosage: 1 TABLET IN THE MORNING AND EVENING
     Route: 048
     Dates: start: 20161216, end: 20161226
  7. METHADONE [Concomitant]
     Active Substance: METHADONE HYDROCHLORIDE
     Indication: DRUG DEPENDENCE
     Route: 065
  8. VENTOLIN [Concomitant]
     Active Substance: ALBUTEROL SULFATE
     Route: 065
  9. TERCIAN [Suspect]
     Active Substance: CYAMEMAZINE
     Indication: ANXIETY
     Dosage: 1 TABLET
     Route: 048
     Dates: start: 20161216, end: 20161224
  10. PARACETAMOL [Concomitant]
     Active Substance: ACETAMINOPHEN
     Indication: SCIATICA
     Route: 065
  11. DITROPAN [Concomitant]
     Active Substance: OXYBUTYNIN CHLORIDE
     Route: 065
  12. TRUVADA [Suspect]
     Active Substance: EMTRICITABINE\TENOFOVIR DISOPROXIL FUMARATE
     Indication: HIV INFECTION
     Dosage: IN THE EVENING 200 MG/ 245 MG
     Route: 048
     Dates: start: 20161219, end: 20161224
  13. SERESTA [Concomitant]
     Active Substance: OXAZEPAM
     Indication: DRUG DEPENDENCE
     Dosage: AT BEDTIME
     Route: 065
  14. MOPRAL [Concomitant]
     Active Substance: OMEPRAZOLE SODIUM
     Route: 065

REACTIONS (3)
  - Blood creatine phosphokinase increased [Recovering/Resolving]
  - Hyperkalaemia [Recovered/Resolved]
  - Hepatocellular injury [Recovering/Resolving]

NARRATIVE: CASE EVENT DATE: 20161223
